FAERS Safety Report 10920818 (Version 4)
Quarter: 2015Q2

REPORT INFORMATION
  Report Type: Spontaneous
  Country: JP (occurrence: JP)
  Receive Date: 20150317
  Receipt Date: 20150505
  Transmission Date: 20150821
  Serious: Yes (Other)
  Sender: FDA-Public Use
  Company Number: JP-ASTELLAS-2015US008495

PATIENT
  Age: 62 Year
  Sex: Male

DRUGS (5)
  1. ERLOTINIB [Suspect]
     Active Substance: ERLOTINIB
     Dosage: 1 DF, 1 IN 4 DAYS
     Route: 048
     Dates: start: 201407
  2. ERLOTINIB [Suspect]
     Active Substance: ERLOTINIB
     Indication: LUNG ADENOCARCINOMA
     Route: 048
     Dates: start: 201103, end: 201305
  3. BIOFERMIN T [Concomitant]
     Indication: PRODUCT USED FOR UNKNOWN INDICATION
     Route: 048
  4. ERLOTINIB [Suspect]
     Active Substance: ERLOTINIB
     Dosage: 1 DF, 1 IN 4 DAYS
     Route: 048
     Dates: start: 201305, end: 201407
  5. LOPEMIN                            /00384302/ [Concomitant]
     Indication: PRODUCT USED FOR UNKNOWN INDICATION
     Route: 048

REACTIONS (2)
  - Retinopathy [Recovering/Resolving]
  - Retinopathy [Recovering/Resolving]

NARRATIVE: CASE EVENT DATE: 201305
